FAERS Safety Report 5709874-5 (Version None)
Quarter: 2008Q2

REPORT INFORMATION
  Report Type: 
  Country: None (occurrence: None)
  Receive Date: 20080418
  Receipt Date: 20070215
  Transmission Date: 20081010
  Serious: No
  Sender: FDA-Public Use
  Company Number: US-ASTRAZENECA-2007UW03066

PATIENT
  Age: 57 Year
  Sex: Male
  Weight: 70.3 kg

DRUGS (6)
  1. TOPROL-XL [Suspect]
     Indication: HYPERTENSION
     Route: 048
     Dates: start: 20060423, end: 20060729
  2. TOPROL-XL [Suspect]
     Dosage: 1/2 50MG TAB
     Route: 048
     Dates: start: 20060729, end: 20070211
  3. TOPROL-XL [Suspect]
     Route: 048
     Dates: start: 20070211
  4. ASCORBIC ACID [Concomitant]
  5. VITAMIN D [Concomitant]
  6. TUMS [Concomitant]

REACTIONS (1)
  - BLOOD PRESSURE INCREASED [None]
